FAERS Safety Report 4593072-5 (Version None)
Quarter: 2005Q1

REPORT INFORMATION
  Report Type: 
  Country: None (occurrence: None)
  Receive Date: 20050301
  Receipt Date: 20050221
  Transmission Date: 20050727
  Serious: Yes (Hospitalization)
  Sender: FDA-Public Use
  Company Number: PHRM2005FR00896

PATIENT
  Age: 77 Year
  Sex: Female

DRUGS (8)
  1. TAREG [Suspect]
     Route: 048
     Dates: start: 20041128, end: 20050202
  2. CORDARONE [Concomitant]
     Route: 065
  3. CORDARONE [Concomitant]
  4. LEVOTHYROX [Concomitant]
     Route: 048
  5. LASILIX [Concomitant]
     Route: 065
  6. NOVONORM [Concomitant]
     Route: 048
  7. CARDENSIEL [Concomitant]
     Route: 048
  8. KAYEXALATE [Concomitant]
     Route: 065

REACTIONS (1)
  - VASCULAR PURPURA [None]
